FAERS Safety Report 14264468 (Version 1)
Quarter: 2017Q4

REPORT INFORMATION
  Report Type: Spontaneous
  Country: US (occurrence: US)
  Receive Date: 20171208
  Receipt Date: 20171208
  Transmission Date: 20180321
  Serious: No
  Sender: FDA-Public Use
  Company Number: US-JAZZ-2017-US-012031

PATIENT
  Sex: Female

DRUGS (18)
  1. ALPRAZOLAM. [Concomitant]
     Active Substance: ALPRAZOLAM
  2. METOPROLOLSUCCINAAT [Concomitant]
     Active Substance: METOPROLOL SUCCINATE
  3. CLARITIN [Concomitant]
     Active Substance: LORATADINE
  4. METADATE [Concomitant]
     Active Substance: METHYLPHENIDATE HYDROCHLORIDE
  5. GABAPENTIN. [Concomitant]
     Active Substance: GABAPENTIN
  6. MECLIZINE [Concomitant]
     Active Substance: MECLIZINE HYDROCHLORIDE
  7. MELATONIN [Concomitant]
     Active Substance: MELATONIN
  8. RITALIN [Concomitant]
     Active Substance: METHYLPHENIDATE HYDROCHLORIDE
  9. SOMA [Concomitant]
     Active Substance: CARISOPRODOL
  10. LORTAB [Concomitant]
     Active Substance: ACETAMINOPHEN\HYDROCODONE BITARTRATE
  11. TRAMADOL HCL [Concomitant]
     Active Substance: TRAMADOL HYDROCHLORIDE
  12. XYREM [Suspect]
     Active Substance: SODIUM OXYBATE
     Dosage: 4.5G, BID
     Route: 048
     Dates: start: 201303
  13. CYMBALTA [Concomitant]
     Active Substance: DULOXETINE HYDROCHLORIDE
  14. METFORMIN HCL [Concomitant]
     Active Substance: METFORMIN HYDROCHLORIDE
  15. LEVOTHYROXINE                      /00068002/ [Concomitant]
     Active Substance: LEVOTHYROXINE
  16. SPIRONOLACTONE. [Concomitant]
     Active Substance: SPIRONOLACTONE
  17. XYREM [Suspect]
     Active Substance: SODIUM OXYBATE
     Indication: NARCOLEPSY
     Dosage: 2.25 G, BID
     Route: 048
     Dates: start: 201102, end: 2011
  18. XYREM [Suspect]
     Active Substance: SODIUM OXYBATE
     Indication: CATAPLEXY
     Dosage: DOSE ADJUSTMENT
     Route: 048
     Dates: start: 2011, end: 201303

REACTIONS (1)
  - Unevaluable event [Unknown]
